FAERS Safety Report 15124249 (Version 1)
Quarter: 2018Q3

REPORT INFORMATION
  Report Type: Spontaneous
  Country: FI (occurrence: FI)
  Receive Date: 20180710
  Receipt Date: 20180710
  Transmission Date: 20181010
  Serious: Yes (Hospitalization)
  Sender: FDA-Public Use
  Company Number: FI-TEVA-2018-FI-923503

PATIENT
  Age: 16 Year
  Sex: Male

DRUGS (1)
  1. DOXIMED [Suspect]
     Active Substance: DOXYCYCLINE
     Indication: ACNE
     Dosage: 150 MILLIGRAM DAILY;
     Route: 048
     Dates: end: 20180507

REACTIONS (1)
  - Pancreatitis [Recovering/Resolving]

NARRATIVE: CASE EVENT DATE: 20180507
